FAERS Safety Report 17797659 (Version 2)
Quarter: 2020Q2

REPORT INFORMATION
  Report Type: Report from Study
  Country: US (occurrence: US)
  Receive Date: 20200518
  Receipt Date: 20200609
  Transmission Date: 20200714
  Serious: Yes (Hospitalization)
  Sender: FDA-Public Use
  Company Number: US-ROCHE-2600086

PATIENT
  Age: 57 Year
  Sex: Female

DRUGS (14)
  1. CLARITIN [Concomitant]
     Active Substance: LORATADINE
  2. METHADONE [Concomitant]
     Active Substance: METHADONE HYDROCHLORIDE
  3. OLANZAPINE. [Concomitant]
     Active Substance: OLANZAPINE
  4. HYDROMORPHONE [Concomitant]
     Active Substance: HYDROMORPHONE
  5. DULOXETINE. [Concomitant]
     Active Substance: DULOXETINE
  6. PREDNISONE. [Suspect]
     Active Substance: PREDNISONE
     Indication: B-CELL LYMPHOMA
     Dosage: MOST RECENT DOSE OF PREDNISONE PRIOR TO ONSET OF SAE : (30/APR/2020)
     Route: 048
     Dates: start: 20200403
  7. DRONABINOL. [Concomitant]
     Active Substance: DRONABINOL
  8. ONDANSETRON [Concomitant]
     Active Substance: ONDANSETRON
  9. IBRUTINIB [Suspect]
     Active Substance: IBRUTINIB
     Indication: B-CELL LYMPHOMA
     Dosage: MOST RECENT DOSE OF IBRUTINIB PRIOR TO ONSET OF SAE : (07/MAY/2020)
     Route: 048
     Dates: start: 20200403
  10. ESOMEPRAZOLE. [Concomitant]
     Active Substance: ESOMEPRAZOLE MAGNESIUM
  11. OBINUTUZUMAB. [Suspect]
     Active Substance: OBINUTUZUMAB
     Indication: B-CELL LYMPHOMA
     Dosage: MOST RECENT DOSE OF OBINUTUZUMAB PRIOR TO ONSET OF SAE : (25/APR/2020)
     Route: 042
     Dates: start: 20200404
  12. LENALIDOMIDE [Suspect]
     Active Substance: LENALIDOMIDE
     Indication: B-CELL LYMPHOMA
     Dosage: MOST RECENT DOSE OF LENALIDOMIDE PRIOR TO ONSET OF SAE : (07/MAY/2020)
     Route: 048
     Dates: start: 20200403
  13. VENETOCLAX. [Suspect]
     Active Substance: VENETOCLAX
     Indication: B-CELL LYMPHOMA
     Dosage: MOST RECENT DOSE OF VENETOCLAX PRIOR TO ONSET OF SAE : (07/MAY/2020)
     Route: 048
     Dates: start: 20200404
  14. PROCHLORPERAZINE. [Concomitant]
     Active Substance: PROCHLORPERAZINE

REACTIONS (1)
  - Diarrhoea [Recovered/Resolved]

NARRATIVE: CASE EVENT DATE: 20200508
